FAERS Safety Report 7692645-0 (Version None)
Quarter: 2011Q3

REPORT INFORMATION
  Report Type: 
  Country: None (occurrence: None)
  Receive Date: 20110819
  Receipt Date: 20110808
  Transmission Date: 20111222
  Serious: Yes (Hospitalization)
  Sender: FDA-Public Use
  Company Number: DE-RANBAXY-2011US-46856

PATIENT
  Age: 63 Year
  Sex: Male

DRUGS (2)
  1. DOXAZOSIN MESYLATE [Suspect]
     Indication: BLOOD PRESSURE
     Dosage: UNK
     Route: 065
  2. VERAPAMIL [Suspect]
     Indication: BLOOD PRESSURE
     Dosage: UNK, UNK
     Route: 065

REACTIONS (5)
  - HYPERTENSION [None]
  - HYPOKALAEMIA [None]
  - ATRIAL FIBRILLATION [None]
  - DRUG INEFFECTIVE [None]
  - CARDIAC FAILURE [None]
